FAERS Safety Report 7471415-2 (Version None)
Quarter: 2011Q2

REPORT INFORMATION
  Report Type: 
  Country: None (occurrence: None)
  Receive Date: 20110511
  Receipt Date: 20110502
  Transmission Date: 20111010
  Serious: Yes (Hospitalization)
  Sender: FDA-Public Use
  Company Number: US-BIOGENIDEC-2010BI037346

PATIENT
  Age: 63 Year
  Sex: Female
  Weight: 83 kg

DRUGS (26)
  1. ELAVIL [Concomitant]
  2. STEROIDS (NOS) [Concomitant]
     Indication: MULTIPLE SCLEROSIS
  3. MICRO-K [Concomitant]
  4. LISINOPRIL [Concomitant]
     Indication: HYPERTENSION
  5. TYSABRI [Suspect]
     Indication: MULTIPLE SCLEROSIS
     Route: 042
     Dates: start: 20100823
  6. LASIX [Concomitant]
  7. LORTAB [Concomitant]
     Indication: PAIN
  8. NORVASC [Concomitant]
  9. NITROGLYCERIN [Concomitant]
  10. CELEXA [Concomitant]
  11. INSULIN [Concomitant]
  12. ZANTAC [Concomitant]
  13. NEURONTIN [Concomitant]
  14. PLAVIX [Concomitant]
     Indication: CEREBROVASCULAR ACCIDENT
  15. TRANDATE [Concomitant]
  16. TYSABRI [Suspect]
     Route: 042
     Dates: start: 20100823
  17. VOLTAREN [Concomitant]
  18. LEVEMIR [Concomitant]
  19. LEVOTHYROXINE SODIUM [Concomitant]
  20. XANAX [Concomitant]
  21. CRESTOR [Concomitant]
     Indication: CEREBROVASCULAR ACCIDENT
  22. LOVAZA [Concomitant]
  23. FAMOTIDINE [Concomitant]
  24. GLUCOTROL [Concomitant]
  25. CLONIDINE [Concomitant]
     Indication: HYPERTENSION
  26. ASPIRIN [Concomitant]

REACTIONS (15)
  - CEREBROVASCULAR ACCIDENT [None]
  - IMPAIRED DRIVING ABILITY [None]
  - VISUAL IMPAIRMENT [None]
  - STRESS [None]
  - DIZZINESS [None]
  - TRANSIENT ISCHAEMIC ATTACK [None]
  - URINARY INCONTINENCE [None]
  - BALANCE DISORDER [None]
  - CEREBRAL HAEMORRHAGE [None]
  - DISORIENTATION [None]
  - BLINDNESS [None]
  - HYPERTENSION [None]
  - EYE HAEMORRHAGE [None]
  - MULTIPLE SCLEROSIS RELAPSE [None]
  - OROPHARYNGEAL PAIN [None]
